FAERS Safety Report 6863132-4 (Version None)
Quarter: 2010Q3

REPORT INFORMATION
  Report Type: 
  Country: None (occurrence: None)
  Receive Date: 20100719
  Receipt Date: 20100708
  Transmission Date: 20110219
  Serious: Yes (Death, Hospitalization)
  Sender: FDA-Public Use
  Company Number: 8028381

PATIENT
  Sex: Male
  Weight: 102 kg

DRUGS (6)
  1. CERTOLIZUMAB PEGOL (CD870) [Suspect]
     Indication: RHEUMATOID ARTHRITIS
     Dosage: SEE IMAGE
     Route: 058
     Dates: start: 20050726, end: 20060711
  2. CERTOLIZUMAB PEGOL (CD870) [Suspect]
     Indication: RHEUMATOID ARTHRITIS
     Dosage: SEE IMAGE
     Route: 058
     Dates: start: 20060711, end: 20071127
  3. METHOTREXATE [Concomitant]
  4. NIMESULIDE [Concomitant]
  5. WARFARIN SODIUM [Concomitant]
  6. ENALAPRIL [Concomitant]

REACTIONS (21)
  - ASCITES [None]
  - ASPARTATE AMINOTRANSFERASE INCREASED [None]
  - BLOOD BILIRUBIN INCREASED [None]
  - BLOOD GLUCOSE INCREASED [None]
  - CARDIOVASCULAR INSUFFICIENCY [None]
  - CYANOSIS [None]
  - DEEP VEIN THROMBOSIS [None]
  - HAEMOCONCENTRATION [None]
  - JEJUNAL ULCER PERFORATION [None]
  - LYMPH NODE TUBERCULOSIS [None]
  - PERITONEAL TUBERCULOSIS [None]
  - PERITONITIS [None]
  - PLEURAL EFFUSION [None]
  - PLEURISY [None]
  - PULMONARY EMBOLISM [None]
  - PULMONARY TUBERCULOSIS [None]
  - RENAL FAILURE ACUTE [None]
  - RENAL TUBERCULOSIS [None]
  - TUBERCULOSIS [None]
  - TUBERCULOSIS GASTROINTESTINAL [None]
  - TUBERCULOSIS LIVER [None]
